FAERS Safety Report 6370636-X (Version None)
Quarter: 2009Q3

REPORT INFORMATION
  Report Type: 
  Country: None (occurrence: None)
  Receive Date: 20090921
  Receipt Date: 20090921
  Transmission Date: 20100115
  Serious: Yes (Death, Hospitalization)
  Sender: FDA-Public Use
  Company Number: None

PATIENT
  Sex: Male

DRUGS (9)
  1. REVLIMID [Suspect]
     Indication: MULTIPLE MYELOMA
     Dosage: 15MG DAILY ORALLY
     Route: 048
     Dates: start: 20080514, end: 20081121
  2. FENTANYL TRANSDERMAL SYSTEM [Concomitant]
  3. OXYCODONE HCL AND ACETAMINOPHEN [Concomitant]
  4. OMEPRAZOLE [Concomitant]
  5. ALKERAN [Concomitant]
  6. PREDNISONE [Concomitant]
  7. PAMIDRONATE DISODIUM [Concomitant]
  8. LUPRON [Concomitant]
  9. WARFARIN SODIUM [Concomitant]

REACTIONS (5)
  - DEEP VEIN THROMBOSIS [None]
  - FAILURE TO THRIVE [None]
  - RENAL FAILURE ACUTE [None]
  - SEPSIS [None]
  - URINARY TRACT INFECTION [None]
